FAERS Safety Report 5315876-3 (Version None)
Quarter: 2007Q1

REPORT INFORMATION
  Report Type: 
  Country: None (occurrence: None)
  Receive Date: 20070130
  Receipt Date: 20061221
  Transmission Date: 20070707
  Serious: No
  Sender: FDA-Public Use
  Company Number: 200620264US

PATIENT
  Sex: Male

DRUGS (1)
  1. KETEK [Suspect]

REACTIONS (1)
  - FLATULENCE [None]
